FAERS Safety Report 23638235 (Version 1)
Quarter: 2024Q1

REPORT INFORMATION
  Report Type: Spontaneous
  Country: US (occurrence: None)
  Receive Date: 20240315
  Receipt Date: 20240315
  Transmission Date: 20240410
  Serious: Yes (unspecified)
  Sender: FDA-Public Use
  Company Number: None

PATIENT
  Age: 75 Year
  Sex: Female

DRUGS (9)
  1. CAPECITABINE [Suspect]
     Active Substance: CAPECITABINE
     Indication: Breast cancer
     Dosage: FREQUENCY : TWICE A DAY;?
     Route: 048
     Dates: start: 20231103, end: 20240308
  2. ASPIRIN [Concomitant]
     Active Substance: ASPIRIN
  3. famotidine 40 [Concomitant]
  4. ATORVASTATIN [Concomitant]
     Active Substance: ATORVASTATIN
  5. oxybutynin 5 [Concomitant]
  6. PANTOPRAZOLE SODIUM [Concomitant]
     Active Substance: PANTOPRAZOLE SODIUM
  7. vitamin d2 50000 [Concomitant]
  8. zofran 8 [Concomitant]
  9. prochlorperazine 10 [Concomitant]

REACTIONS (2)
  - Therapy interrupted [None]
  - Drug ineffective [None]

NARRATIVE: CASE EVENT DATE: 20240308
